FAERS Safety Report 9247959 (Version 2)
Quarter: 2014Q1

REPORT INFORMATION
  Report Type: Spontaneous
  Country: US (occurrence: US)
  Receive Date: 20130423
  Receipt Date: 20140117
  Transmission Date: 20141002
  Serious: No
  Sender: FDA-Public Use
  Company Number: US-ASTRAZENECA-2013SE27362

PATIENT
  Sex: Male
  Weight: 90.7 kg

DRUGS (4)
  1. NEXIUM [Suspect]
     Route: 048
     Dates: start: 20090304
  2. OMEPRAZOLE [Concomitant]
  3. GABAPENTIN [Concomitant]
  4. CEPHALEXIN [Concomitant]

REACTIONS (6)
  - Osteoporosis [Unknown]
  - Bone disorder [Unknown]
  - Multiple fractures [Unknown]
  - Intervertebral disc degeneration [Unknown]
  - Road traffic accident [Unknown]
  - Spinal osteoarthritis [Unknown]
